FAERS Safety Report 11844782 (Version 2)
Quarter: 2015Q4

REPORT INFORMATION
  Report Type: Report from Study
  Country: BR (occurrence: BR)
  Receive Date: 20151217
  Receipt Date: 20151221
  Transmission Date: 20160305
  Serious: Yes (Hospitalization, Other)
  Sender: FDA-Public Use
  Company Number: BR-NOVOPROD-468708

PATIENT
  Sex: Female

DRUGS (3)
  1. IDEG PDS290 [Suspect]
     Active Substance: INSULIN DEGLUDEC
     Dosage: 18 IU
     Route: 065
  2. IDEG PDS290 [Suspect]
     Active Substance: INSULIN DEGLUDEC
     Indication: DIABETES MELLITUS
     Dosage: 10 IU
     Route: 065
  3. IDEG PDS290 [Suspect]
     Active Substance: INSULIN DEGLUDEC
     Dosage: 35 IU
     Route: 065

REACTIONS (8)
  - Headache [Unknown]
  - Drug ineffective [Unknown]
  - Injection site extravasation [Unknown]
  - Diabetes mellitus inadequate control [Unknown]
  - Wrong technique in product usage process [Unknown]
  - Product physical issue [Unknown]
  - Insulin resistance [Unknown]
  - Hypoaesthesia [Unknown]
